FAERS Safety Report 15129073 (Version 1)
Quarter: 2018Q3

REPORT INFORMATION
  Report Type: Spontaneous
  Country: US (occurrence: US)
  Receive Date: 20180711
  Receipt Date: 20180711
  Transmission Date: 20181010
  Serious: No
  Sender: FDA-Public Use
  Company Number: US-GLENMARK PHARMACEUTICALS-2017GMK030020

PATIENT

DRUGS (1)
  1. FLUOCINONIDE. [Suspect]
     Active Substance: FLUOCINONIDE
     Indication: SKIN INFECTION
     Dosage: UNK
     Route: 065

REACTIONS (2)
  - Feeling hot [Unknown]
  - Product use in unapproved indication [Unknown]
